FAERS Safety Report 11666284 (Version 5)
Quarter: 2016Q4

REPORT INFORMATION
  Report Type: Spontaneous
  Country: CA (occurrence: CA)
  Receive Date: 20151027
  Receipt Date: 20161123
  Transmission Date: 20170206
  Serious: Yes (Other)
  Sender: FDA-Public Use
  Company Number: CA-ROCHE-1650821

PATIENT
  Age: 38 Year
  Sex: Male

DRUGS (8)
  1. XOLAIR [Suspect]
     Active Substance: OMALIZUMAB
     Route: 058
     Dates: start: 20140501
  2. VENTOLIN [Concomitant]
     Active Substance: ALBUTEROL SULFATE
  3. SINGULAIR [Concomitant]
     Active Substance: MONTELUKAST SODIUM
  4. ZENHALE [Concomitant]
     Active Substance: FORMOTEROL FUMARATE\MOMETASONE FUROATE
  5. ATROVENT [Concomitant]
     Active Substance: IPRATROPIUM BROMIDE
  6. XOLAIR [Suspect]
     Active Substance: OMALIZUMAB
     Route: 058
     Dates: start: 20160414
  7. XOLAIR [Suspect]
     Active Substance: OMALIZUMAB
     Indication: ASTHMA
     Route: 058
     Dates: start: 20131101
  8. XOLAIR [Suspect]
     Active Substance: OMALIZUMAB
     Route: 058
     Dates: start: 20160428

REACTIONS (20)
  - Contusion [Unknown]
  - Dyspnoea [Unknown]
  - Painful respiration [Unknown]
  - Insomnia [Unknown]
  - Malaise [Unknown]
  - Post-traumatic neck syndrome [Unknown]
  - Myalgia [Unknown]
  - Stress [Unknown]
  - Restrictive pulmonary disease [Unknown]
  - Wheezing [Unknown]
  - Snoring [Unknown]
  - Middle insomnia [Unknown]
  - Muscle spasms [Unknown]
  - Asthma [Recovering/Resolving]
  - Chest discomfort [Unknown]
  - Tremor [Unknown]
  - Drug ineffective [Unknown]
  - Bronchitis [Unknown]
  - Nasopharyngitis [Unknown]
  - Road traffic accident [Unknown]

NARRATIVE: CASE EVENT DATE: 20131101
